FAERS Safety Report 23925495 (Version 2)
Quarter: 2024Q3

REPORT INFORMATION
  Report Type: Report from Study
  Country: CA (occurrence: CA)
  Receive Date: 20240531
  Receipt Date: 20240903
  Transmission Date: 20241017
  Serious: Yes (Other)
  Sender: PFIZER
  Company Number: CA-TAKEDA-2022TUS086258

PATIENT
  Age: 58 Year
  Sex: Female

DRUGS (5)
  1. PANTOPRAZOLE SODIUM [Suspect]
     Active Substance: PANTOPRAZOLE SODIUM
     Indication: Gastrooesophageal reflux disease
     Dosage: 40 MILLIGRAM, BID
     Route: 065
  2. ENTYVIO [Suspect]
     Active Substance: VEDOLIZUMAB
     Indication: Crohn^s disease
     Dosage: 300 MILLIGRAM
     Route: 042
     Dates: start: 20220513
  3. ENTYVIO [Suspect]
     Active Substance: VEDOLIZUMAB
     Indication: Crohn^s disease
     Dosage: 108 MILLIGRAM, Q2WEEKS
     Route: 058
     Dates: start: 20220819
  4. ENTYVIO [Suspect]
     Active Substance: VEDOLIZUMAB
     Dosage: 108 MILLIGRAM, Q2WEEKS
     Route: 058
  5. POLYETHYLENE GLYCOL 3350 [Concomitant]
     Active Substance: POLYETHYLENE GLYCOL 3350
     Dosage: UNK

REACTIONS (16)
  - Crohn^s disease [Unknown]
  - Weight increased [Unknown]
  - Gastrointestinal obstruction [Unknown]
  - Frequent bowel movements [Unknown]
  - Abnormal faeces [Unknown]
  - General physical health deterioration [Unknown]
  - Diarrhoea [Unknown]
  - Abdominal pain [Unknown]
  - Arthralgia [Unknown]
  - Abdominal mass [Unknown]
  - Faeces soft [Unknown]
  - Glucose tolerance impaired [Unknown]
  - Vomiting [Unknown]
  - Malaise [Unknown]
  - Blood pressure abnormal [Unknown]
  - Duodenal stenosis [Unknown]

NARRATIVE: CASE EVENT DATE: 20240326
